FAERS Safety Report 7081145-7 (Version None)
Quarter: 2010Q4

REPORT INFORMATION
  Report Type: 
  Country: None (occurrence: None)
  Receive Date: 20101103
  Receipt Date: 20101026
  Transmission Date: 20110411
  Serious: Yes (Other)
  Sender: FDA-Public Use
  Company Number: B0662028A

PATIENT
  Sex: Male

DRUGS (1)
  1. RETROVIR [Suspect]
     Indication: HIV INFECTION
     Route: 065

REACTIONS (6)
  - ABDOMINAL DISCOMFORT [None]
  - DIABETES MELLITUS [None]
  - FAT REDISTRIBUTION [None]
  - ILL-DEFINED DISORDER [None]
  - LIPIDS INCREASED [None]
  - LIPOHYPERTROPHY [None]
